FAERS Safety Report 15827645 (Version 1)
Quarter: 2019Q1

REPORT INFORMATION
  Report Type: Spontaneous
  Country: IN (occurrence: IN)
  Receive Date: 20190115
  Receipt Date: 20190115
  Transmission Date: 20190417
  Serious: Yes (Hospitalization, Other)
  Sender: FDA-Public Use
  Company Number: IN-UNICHEM PHARMACEUTICALS (USA) INC-UCM201901-000007

PATIENT
  Age: 22 Year
  Sex: Female

DRUGS (1)
  1. AMLODIPINE [Suspect]
     Active Substance: AMLODIPINE BESYLATE
     Dosage: 90 TABLETS OF 10 MG EACH

REACTIONS (12)
  - Hypotension [Recovered/Resolved]
  - Toxicity to various agents [Unknown]
  - Pleural effusion [Recovering/Resolving]
  - Oedema peripheral [Recovering/Resolving]
  - Urine output decreased [Recovered/Resolved]
  - Sinus tachycardia [Recovered/Resolved]
  - Respiratory failure [Recovered/Resolved]
  - Ascites [Recovering/Resolving]
  - Intentional overdose [Unknown]
  - Shock [Recovered/Resolved]
  - Acute kidney injury [Recovered/Resolved]
  - Vomiting [Recovered/Resolved]
